FAERS Safety Report 10064509 (Version 1)
Quarter: 2014Q2

REPORT INFORMATION
  Report Type: Spontaneous
  Country: JP (occurrence: JP)
  Receive Date: 20140408
  Receipt Date: 20140408
  Transmission Date: 20141212
  Serious: Yes (Hospitalization)
  Sender: FDA-Public Use
  Company Number: JP-ASTELLAS-2014JP003149

PATIENT
  Age: 84 Year
  Sex: Male

DRUGS (2)
  1. BETANIS [Suspect]
     Route: 048
  2. BETANIS [Suspect]
     Route: 065

REACTIONS (2)
  - Intentional product misuse [Unknown]
  - Intestinal obstruction [Unknown]
